FAERS Safety Report 23419741 (Version 1)
Quarter: 2024Q1

REPORT INFORMATION
  Report Type: Report from Study
  Country: CO (occurrence: None)
  Receive Date: 20240119
  Receipt Date: 20240119
  Transmission Date: 20240409
  Serious: Yes (Hospitalization)
  Sender: FDA-Public Use
  Company Number: 2024A012436

PATIENT
  Age: 78 Year
  Sex: Female
  Weight: 76 kg

DRUGS (1)
  1. CALQUENCE [Suspect]
     Active Substance: ACALABRUTINIB
     Indication: Acute lymphocytic leukaemia
     Route: 048
     Dates: start: 20231211

REACTIONS (4)
  - Fluid retention [Recovering/Resolving]
  - Blood pressure increased [Recovering/Resolving]
  - Illness [Recovering/Resolving]
  - Product prescribing issue [Unknown]

NARRATIVE: CASE EVENT DATE: 20231219
